FAERS Safety Report 9349298 (Version 1)
Quarter: 2013Q2

REPORT INFORMATION
  Report Type: Report from Study
  Country: US (occurrence: US)
  Receive Date: 20130614
  Receipt Date: 20130614
  Transmission Date: 20140414
  Serious: Yes (Hospitalization)
  Sender: FDA-Public Use
  Company Number: US-ABBOTT-13P-163-1102532-00

PATIENT
  Age: 29 Year
  Sex: Male

DRUGS (6)
  1. HUMIRA [Suspect]
     Indication: CROHN^S DISEASE
     Dosage: LOADING DOSE
     Dates: start: 20121107, end: 20121107
  2. HUMIRA [Suspect]
     Dates: start: 20121121, end: 20121121
  3. HUMIRA [Suspect]
     Dates: end: 20130105
  4. HUMIRA [Suspect]
     Dates: start: 20130517
  5. CIPRO [Concomitant]
     Indication: PRODUCT USED FOR UNKNOWN INDICATION
     Dates: start: 201301
  6. FLAGYL [Concomitant]
     Indication: PRODUCT USED FOR UNKNOWN INDICATION
     Dates: start: 201301

REACTIONS (11)
  - Gastrointestinal oedema [Recovering/Resolving]
  - Crohn^s disease [Recovering/Resolving]
  - Vomiting [Recovering/Resolving]
  - Crohn^s disease [Unknown]
  - Injection site pain [Unknown]
  - Diarrhoea [Unknown]
  - Psoriasis [Unknown]
  - Arthritis [Unknown]
  - Joint swelling [Unknown]
  - Arthralgia [Unknown]
  - Stomatitis [Unknown]
